FAERS Safety Report 5585721-X (Version None)
Quarter: 2008Q1

REPORT INFORMATION
  Report Type: 
  Country: None (occurrence: None)
  Receive Date: 20080109
  Receipt Date: 20071212
  Transmission Date: 20080703
  Serious: No
  Sender: FDA-Public Use
  Company Number: US-BAYER-200714168BCC

PATIENT
  Age: 58 Year
  Sex: Female
  Weight: 50 kg

DRUGS (3)
  1. ALEVE [Suspect]
     Indication: ARTHRITIS
     Dosage: AS USED: 220 MG  UNIT DOSE: 220 MG
     Route: 048
     Dates: start: 20071211
  2. HORMONE PILL [Concomitant]
  3. CALCIUM GLUCONATE [Concomitant]

REACTIONS (3)
  - INSOMNIA [None]
  - RESTLESSNESS [None]
  - STOMACH DISCOMFORT [None]
